FAERS Safety Report 5591857-X (Version None)
Quarter: 2008Q1

REPORT INFORMATION
  Report Type: 
  Country: None (occurrence: None)
  Receive Date: 20080115
  Receipt Date: 20080103
  Transmission Date: 20080703
  Serious: Yes (Other)
  Sender: FDA-Public Use
  Company Number: B0502649A

PATIENT
  Sex: Female

DRUGS (2)
  1. SEROXAT [Suspect]
     Indication: DRUG USE FOR UNKNOWN INDICATION
     Route: 065
     Dates: start: 19970101
  2. DOTHIEPIN HYDROCHLORIDE [Concomitant]
     Dates: start: 19990101

REACTIONS (6)
  - AGGRESSION [None]
  - ANGER [None]
  - CONFUSIONAL STATE [None]
  - DRUG WITHDRAWAL SYNDROME [None]
  - MENTAL DISORDER [None]
  - PALPITATIONS [None]
